FAERS Safety Report 7971393-3 (Version None)
Quarter: 2011Q4

REPORT INFORMATION
  Report Type: 
  Country: None (occurrence: None)
  Receive Date: 20111212
  Receipt Date: 20111201
  Transmission Date: 20120403
  Serious: Yes (Hospitalization, Disabling, Other)
  Sender: FDA-Public Use
  Company Number: US-MERCK-1108USA02438

PATIENT
  Age: 63 Year
  Sex: Female
  Weight: 115 kg

DRUGS (6)
  1. FOSAMAX [Suspect]
     Indication: OSTEOPOROSIS
     Route: 048
     Dates: start: 20021001, end: 20080501
  2. FOSAMAX [Suspect]
     Indication: OSTEOPOROSIS PROPHYLAXIS
     Route: 048
     Dates: start: 20021001, end: 20080501
  3. FOSAMAX [Suspect]
     Route: 048
     Dates: start: 20080501, end: 20080901
  4. ALENDRONATE SODIUM [Suspect]
     Indication: OSTEOPOROSIS
     Route: 048
     Dates: start: 20080911, end: 20090801
  5. FOSAMAX [Suspect]
     Route: 048
     Dates: start: 20080501, end: 20080901
  6. CALCIUM (UNSPECIFIED) AND VITAMIN D (UNSPECIFIED) [Concomitant]
     Route: 065
     Dates: start: 19980101

REACTIONS (37)
  - CARDIAC FAILURE CONGESTIVE [None]
  - CARDIOMEGALY [None]
  - ADVERSE EVENT [None]
  - LOW TURNOVER OSTEOPATHY [None]
  - VENOUS INSUFFICIENCY [None]
  - CARDIAC MURMUR [None]
  - ANAEMIA [None]
  - GASTRIC ULCER [None]
  - FALL [None]
  - SOFT TISSUE MASS [None]
  - RENAL MASS [None]
  - OESOPHAGITIS [None]
  - PAIN IN EXTREMITY [None]
  - OESOPHAGEAL ULCER [None]
  - ADRENAL MASS [None]
  - CHEST PAIN [None]
  - GASTROOESOPHAGEAL REFLUX DISEASE [None]
  - TRANSIENT ISCHAEMIC ATTACK [None]
  - BLOOD DISORDER [None]
  - OCCULT BLOOD POSITIVE [None]
  - GASTRITIS EROSIVE [None]
  - PULMONARY HYPERTENSION [None]
  - OSTEOARTHRITIS [None]
  - FEMUR FRACTURE [None]
  - GOITRE [None]
  - HAEMATOCRIT DECREASED [None]
  - SPINAL OSTEOARTHRITIS [None]
  - HAND FRACTURE [None]
  - DUODENAL ULCER [None]
  - MYELOPROLIFERATIVE DISORDER [None]
  - LUNG NEOPLASM [None]
  - PULMONARY HILUM MASS [None]
  - EROSIVE DUODENITIS [None]
  - THROMBOSIS [None]
  - STRESS FRACTURE [None]
  - MUSCLE SPASMS [None]
  - ARTHRALGIA [None]
